FAERS Safety Report 8312386-6 (Version None)
Quarter: 2012Q2

REPORT INFORMATION
  Report Type: 
  Country: None (occurrence: None)
  Receive Date: 20120425
  Receipt Date: 20120416
  Transmission Date: 20120825
  Serious: Yes (Life-Threatening, Hospitalization, Other)
  Sender: FDA-Public Use
  Company Number: GB-AMGEN-GBRSP2012010347

PATIENT
  Age: 53 Year
  Sex: Male

DRUGS (5)
  1. ETANERCEPT [Suspect]
     Dosage: 25 MG, 2X/WEEK
     Route: 058
     Dates: start: 20010801, end: 20111019
  2. METHOTREXATE [Concomitant]
     Indication: RHEUMATOID ARTHRITIS
     Dosage: 7.5 MG, WEEKLY
     Route: 048
     Dates: start: 20001218, end: 20111019
  3. PERINDOPRIL [Concomitant]
     Dosage: UNK
  4. SIMVASTATIN [Concomitant]
     Dosage: 40 MG, 1X/DAY
     Route: 048
  5. ETANERCEPT [Suspect]
     Indication: RHEUMATOID ARTHRITIS
     Dosage: UNK
     Dates: start: 20000101

REACTIONS (1)
  - GLIOBLASTOMA [None]
